FAERS Safety Report 7861297-9 (Version None)
Quarter: 2011Q4

REPORT INFORMATION
  Report Type: 
  Country: None (occurrence: None)
  Receive Date: 20111027
  Receipt Date: 20111018
  Transmission Date: 20120403
  Serious: Yes (Other)
  Sender: FDA-Public Use
  Company Number: PHHY2011SG92200

PATIENT
  Age: 40 Year
  Sex: Female

DRUGS (1)
  1. METOPROLOL TARTRATE [Suspect]
     Dosage: 25 MG, BID

REACTIONS (3)
  - VENTRICULAR EXTRASYSTOLES [None]
  - DRUG INEFFECTIVE [None]
  - VENTRICULAR TACHYCARDIA [None]
